FAERS Safety Report 9299244 (Version 2)
Quarter: 2013Q3

REPORT INFORMATION
  Report Type: Spontaneous
  Country: US (occurrence: US)
  Receive Date: 20130520
  Receipt Date: 20130703
  Transmission Date: 20140515
  Serious: No
  Sender: FDA-Public Use
  Company Number: US-ASTRAZENECA-2013SE31823

PATIENT
  Age: 54 Year
  Sex: Female
  Weight: 90.7 kg

DRUGS (4)
  1. SYMBICORT PMDI [Suspect]
     Indication: ASTHMA
     Dosage: 160/4.5 MCG, 2 PUFFS TWO TIMES DAILY
     Route: 055
     Dates: start: 2010
  2. SYMBICORT PMDI [Suspect]
     Indication: ASTHMA
     Route: 055
  3. DAILY VITAMINS [Concomitant]
  4. DILTIAZAM [Concomitant]
     Indication: HYPERTENSION

REACTIONS (2)
  - Dyspnoea [Unknown]
  - Malaise [Unknown]
